FAERS Safety Report 5027445-3 (Version None)
Quarter: 2006Q2

REPORT INFORMATION
  Report Type: 
  Country: None (occurrence: None)
  Receive Date: 20060501
  Receipt Date: 20060220
  Transmission Date: 20061013
  Serious: No
  Sender: FDA-Public Use
  Company Number: 200611057BWH

PATIENT
  Age: 69 Year
  Sex: Male

DRUGS (4)
  1. NEXAVAR [Suspect]
     Indication: RENAL CELL CARCINOMA STAGE UNSPECIFIED
     Dosage: 400 MG, BID, ORAL
     Route: 048
     Dates: start: 20060209, end: 20060220
  2. PROZAC [Concomitant]
  3. VITAMINS [Concomitant]
  4. CALCIUM GLUCONATE [Concomitant]

REACTIONS (6)
  - GLOSSODYNIA [None]
  - HAEMORRHOIDS [None]
  - HYPERTENSION [None]
  - ORAL PAIN [None]
  - RASH GENERALISED [None]
  - SKIN LESION [None]
